FAERS Safety Report 8020329-8 (Version None)
Quarter: 2012Q1

REPORT INFORMATION
  Report Type: 
  Country: None (occurrence: None)
  Receive Date: 20120103
  Receipt Date: 20111219
  Transmission Date: 20120608
  Serious: Yes (Other)
  Sender: FDA-Public Use
  Company Number: IN-WATSON-2011-22421

PATIENT
  Age: 36 Year
  Sex: Male

DRUGS (1)
  1. CABERGOLINE [Suspect]
     Indication: HYPERPROLACTINAEMIA
     Dosage: 3 MG EVERY WEEK

REACTIONS (4)
  - BRAIN HERNIATION [None]
  - VISUAL ACUITY REDUCED [None]
  - VISUAL PATHWAY DISORDER [None]
  - CONVULSION [None]
